FAERS Safety Report 18312270 (Version 1)
Quarter: 2020Q3

REPORT INFORMATION
  Report Type: Spontaneous
  Country: US (occurrence: US)
  Receive Date: 20200925
  Receipt Date: 20200925
  Transmission Date: 20201103
  Serious: Yes (Life-Threatening, Hospitalization)
  Sender: FDA-Public Use
  Company Number: None

PATIENT
  Age: 81 Year
  Sex: Female
  Weight: 75 kg

DRUGS (22)
  1. TIZANIDINE 2 MG [Concomitant]
     Active Substance: TIZANIDINE
  2. VITAMIN B?12 1000 MCG [Concomitant]
  3. FLUTICASONE?SALMETEROL 500MCG/50MCG [Concomitant]
  4. ALENDRONATE 70 MG [Concomitant]
     Active Substance: ALENDRONATE SODIUM
  5. DULOXETINE 30 MG [Concomitant]
     Active Substance: DULOXETINE
  6. GABAPENTIN 300 MG [Concomitant]
     Active Substance: GABAPENTIN
  7. VITAMIN D3 2000 MG [Concomitant]
  8. LORAZEPAM 0.5 MG [Concomitant]
     Active Substance: LORAZEPAM
  9. EZETIMIBE 10 MG [Concomitant]
     Active Substance: EZETIMIBE
  10. NEBIVOLOL 10 MG [Concomitant]
  11. WARFARIN [Suspect]
     Active Substance: WARFARIN
     Indication: ATRIAL FIBRILLATION
     Dosage: ?          OTHER FREQUENCY:DAILY X 5 MG MF;?
     Route: 048
     Dates: start: 20100916
  12. HYDRAZINE 50 MG [Concomitant]
  13. TRAMADOL 50 MG [Concomitant]
     Active Substance: TRAMADOL
  14. PRO AIR HFA 90 MCG [Concomitant]
  15. DEXLANSOPRAZOLE 60 MG [Concomitant]
  16. ZAFIRLUKAST 20 MG [Concomitant]
  17. FERROUS SULFATE 325 MG [Concomitant]
  18. LEVOTHYROXINE 50 MCG [Concomitant]
     Active Substance: LEVOTHYROXINE
  19. MAGNESIUM OXIDE 400 MG [Concomitant]
     Active Substance: MAGNESIUM OXIDE
  20. FELODIPINE 10 MG [Concomitant]
     Active Substance: FELODIPINE
  21. ZOLPIDEM 5 MG [Concomitant]
     Active Substance: ZOLPIDEM TARTRATE
  22. PREDNISONE 5 MG [Concomitant]
     Active Substance: PREDNISONE

REACTIONS (4)
  - Fractured sacrum [None]
  - Abdominal pain [None]
  - Rectal haemorrhage [None]
  - Haemoglobin decreased [None]

NARRATIVE: CASE EVENT DATE: 20200908
